FAERS Safety Report 6969659-9 (Version None)
Quarter: 2010Q3

REPORT INFORMATION
  Report Type: 
  Country: None (occurrence: None)
  Receive Date: 20100908
  Receipt Date: 20100830
  Transmission Date: 20110219
  Serious: Yes (Hospitalization)
  Sender: FDA-Public Use
  Company Number: US-US-EMD SERONO, INC.-230929J08USA

PATIENT
  Sex: Female
  Weight: 68 kg

DRUGS (7)
  1. REBIF [Suspect]
     Indication: MULTIPLE SCLEROSIS
     Route: 058
     Dates: start: 20060101
  2. SOLU-MEDROL [Suspect]
     Indication: MULTIPLE SCLEROSIS
  3. UNSPECIFIED NASAL ALLERGY SPRAY [Concomitant]
     Indication: HYPERSENSITIVITY
     Route: 065
  4. UNSPECIFIED NASAL ALLERGY SPRAY [Concomitant]
     Indication: CHRONIC SINUSITIS
  5. UNSPECIFIED BLOOD PRESSURE MEDICATION [Concomitant]
     Indication: HYPERTENSION
     Route: 065
  6. OTHER UNSPECIFIED MEDICATION [Concomitant]
     Route: 065
  7. ACETAMINOPHEN [Concomitant]
     Indication: PREMEDICATION
     Route: 065

REACTIONS (5)
  - ATRIAL FIBRILLATION [None]
  - CHRONIC SINUSITIS [None]
  - FATIGUE [None]
  - INJECTION SITE REACTION [None]
  - NEURALGIA [None]
